FAERS Safety Report 12791716 (Version 2)
Quarter: 2016Q4

REPORT INFORMATION
  Report Type: Spontaneous
  Country: NL (occurrence: NL)
  Receive Date: 20160929
  Receipt Date: 20161019
  Transmission Date: 20170207
  Serious: Yes (Other)
  Sender: FDA-Public Use
  Company Number: NL-TOLMAR, INC.-2016NL008513

PATIENT
  Age: 67 Year
  Sex: Male

DRUGS (3)
  1. ELIGARD [Suspect]
     Active Substance: LEUPROLIDE ACETATE
     Dosage: 45 MG, 1XPER 6 MONTHS
     Route: 058
     Dates: start: 20160226
  2. ELIGARD [Suspect]
     Active Substance: LEUPROLIDE ACETATE
     Dosage: 45 MG, 1XPER 6 MONTHS
     Route: 058
     Dates: start: 20160825
  3. ELIGARD [Suspect]
     Active Substance: LEUPROLIDE ACETATE
     Indication: PROSTATE CANCER
     Dosage: 45 MG, 1XPER 6 MONTHS
     Route: 058
     Dates: start: 20150825

REACTIONS (3)
  - Condition aggravated [Unknown]
  - Prostatic specific antigen increased [Unknown]
  - Hormone-refractory prostate cancer [Unknown]

NARRATIVE: CASE EVENT DATE: 20160815
